FAERS Safety Report 8952292 (Version 1)
Quarter: 2012Q4

REPORT INFORMATION
  Report Type: Report from Study
  Country: KR (occurrence: KR)
  Receive Date: 20121205
  Receipt Date: 20121205
  Transmission Date: 20130627
  Serious: Yes (Hospitalization)
  Sender: FDA-Public Use
  Company Number: KR-009507513-1211KOR012431

PATIENT
  Age: 41 Year
  Sex: Female
  Weight: 69.9 kg

DRUGS (8)
  1. TEMOZOLOMIDE [Suspect]
     Indication: GLIOBLASTOMA
     Dosage: 120 GBq, qd
     Route: 048
     Dates: start: 20110209, end: 20110323
  2. TEMOZOLOMIDE [Suspect]
     Dosage: 120 GBq, qd
     Route: 048
  3. STUDY DRUG (UNSPECIFIED) [Suspect]
     Indication: GLIOBLASTOMA
     Dosage: blinded bevacizumab
     Route: 042
     Dates: start: 20110209, end: 20110324
  4. STUDY DRUG (UNSPECIFIED) [Suspect]
     Dosage: blinded bevacizumab
     Route: 042
  5. TOPIRAMATE [Concomitant]
     Dosage: 50 mg, UNK
     Dates: start: 20110413
  6. PANBURON [Concomitant]
     Dosage: 3 DF, UNK
     Dates: start: 20110322, end: 20110422
  7. CIMETIDINE [Concomitant]
     Dosage: 600 mg, UNK
     Dates: start: 20110324, end: 20110406
  8. ITOPRIDE HYDROCHLORIDE [Concomitant]
     Dosage: daily dose 150 mg
     Dates: start: 20110319, end: 20110406

REACTIONS (1)
  - Hepatitis B [Recovered/Resolved with Sequelae]
